FAERS Safety Report 9478043 (Version 1)
Quarter: 2013Q3

REPORT INFORMATION
  Report Type: Report from Study
  Country: BR (occurrence: BR)
  Receive Date: 20130827
  Receipt Date: 20130827
  Transmission Date: 20140515
  Serious: Yes (Other)
  Sender: FDA-Public Use
  Company Number: PHHY2013BR092247

PATIENT
  Sex: Female

DRUGS (1)
  1. ACLASTA [Suspect]
     Dosage: 5 MG, UNK
     Route: 042
     Dates: start: 2012

REACTIONS (5)
  - Oral disorder [Unknown]
  - Bone disorder [Unknown]
  - Purulence [Unknown]
  - Trigeminal nerve disorder [Unknown]
  - Headache [Unknown]
